FAERS Safety Report 5965343-9 (Version None)
Quarter: 2008Q4

REPORT INFORMATION
  Report Type: 
  Country: None (occurrence: None)
  Receive Date: 20081119
  Receipt Date: 20081029
  Transmission Date: 20090506
  Serious: No
  Sender: FDA-Public Use
  Company Number: TCI2008A05500

PATIENT
  Sex: 0

DRUGS (1)
  1. LANSOPRAZOLE [Suspect]
     Dosage: PER ORAL
     Route: 048

REACTIONS (3)
  - ANXIETY [None]
  - MIDDLE INSOMNIA [None]
  - VISION BLURRED [None]
